FAERS Safety Report 7767731-7 (Version None)
Quarter: 2011Q3

REPORT INFORMATION
  Report Type: 
  Country: None (occurrence: None)
  Receive Date: 20110922
  Receipt Date: 20101210
  Transmission Date: 20111222
  Serious: Yes (Other)
  Sender: FDA-Public Use
  Company Number: US-ASTRAZENECA-2007UW13911

PATIENT
  Sex: Male
  Weight: 90.7 kg

DRUGS (10)
  1. SEROQUEL [Suspect]
     Dosage: 100-500 MG
     Route: 048
     Dates: start: 20060607
  2. SEROQUEL [Suspect]
     Indication: SLEEP DISORDER
     Route: 048
     Dates: start: 20060607, end: 20060713
  3. SEROQUEL [Suspect]
     Indication: SCHIZOPHRENIA
     Route: 048
     Dates: start: 20060607, end: 20060713
  4. DEPAKOTE [Concomitant]
     Dates: start: 20060717, end: 20090115
  5. SEROQUEL [Suspect]
     Dosage: 100-500 MG
     Route: 048
     Dates: start: 20060607
  6. SEROQUEL [Suspect]
     Dosage: 100-500 MG
     Route: 048
     Dates: start: 20060607
  7. RISPERDAL [Concomitant]
     Indication: BIPOLAR DISORDER
     Dates: start: 20060717
  8. GEODON [Concomitant]
     Dates: start: 20080916, end: 20090413
  9. CYMBALTA [Concomitant]
     Dosage: 30-60 MG
     Dates: start: 20061003, end: 20090323
  10. SEROQUEL [Suspect]
     Indication: BIPOLAR DISORDER
     Route: 048
     Dates: start: 20060607, end: 20060713

REACTIONS (2)
  - TYPE 2 DIABETES MELLITUS [None]
  - PANCREATITIS [None]
